FAERS Safety Report 17526247 (Version 1)
Quarter: 2020Q1

REPORT INFORMATION
  Report Type: Spontaneous
  Country: GB (occurrence: GB)
  Receive Date: 20200311
  Receipt Date: 20200311
  Transmission Date: 20200409
  Serious: No
  Sender: FDA-Public Use
  Company Number: None

PATIENT
  Age: 54 Year
  Sex: Male
  Weight: 94.5 kg

DRUGS (4)
  1. BISPOROL [Concomitant]
  2. LOSARTAN. [Concomitant]
     Active Substance: LOSARTAN
  3. CITALOPRAM [Concomitant]
     Active Substance: CITALOPRAM HYDROBROMIDE
  4. HEMP EXTRACT GUMMIES [Suspect]
     Active Substance: HEMP
     Indication: BACK PAIN
     Dosage: ?          QUANTITY:2 GUMMIES;OTHER FREQUENCY:ONCE OR TWICE A DA;?
     Route: 048
     Dates: start: 20200110, end: 20200115

REACTIONS (3)
  - Mental disorder [None]
  - Suspected product contamination [None]
  - Loss of employment [None]

NARRATIVE: CASE EVENT DATE: 20200115
